FAERS Safety Report 11082112 (Version 1)
Quarter: 2015Q2

REPORT INFORMATION
  Report Type: Report from Study
  Country: GB (occurrence: GB)
  Receive Date: 20150501
  Receipt Date: 20150501
  Transmission Date: 20150821
  Serious: Yes (Death, Other)
  Sender: FDA-Public Use
  Company Number: GB-GLAXOSMITHKLINE-GB2015GSK058611

PATIENT
  Age: 8 Year
  Sex: Female

DRUGS (3)
  1. EFAVIRENZ [Suspect]
     Active Substance: EFAVIRENZ
     Indication: HIV INFECTION
  2. ABACAVIR [Suspect]
     Active Substance: ABACAVIR
     Indication: HIV INFECTION
  3. LAMIVUDINE. [Suspect]
     Active Substance: LAMIVUDINE
     Indication: HIV INFECTION

REACTIONS (7)
  - Respiratory disorder [Unknown]
  - Hepatosplenomegaly [Unknown]
  - Immune reconstitution inflammatory syndrome [Fatal]
  - Lymphadenopathy [Unknown]
  - Mycobacterium avium complex infection [Unknown]
  - Mechanical ventilation [Unknown]
  - Tuberculosis [Unknown]
